FAERS Safety Report 6972725-5 (Version None)
Quarter: 2010Q3

REPORT INFORMATION
  Report Type: 
  Country: None (occurrence: None)
  Receive Date: 20100909
  Receipt Date: 20100713
  Transmission Date: 20110219
  Serious: No
  Sender: FDA-Public Use
  Company Number: US-KINGPHARMUSA00001-K201000886

PATIENT
  Sex: Female

DRUGS (2)
  1. CYTOMEL [Suspect]
     Indication: TRI-IODOTHYRONINE DECREASED
     Dosage: UNK
  2. SYNTHROID [Suspect]
     Indication: TRI-IODOTHYRONINE DECREASED
     Dosage: UNK

REACTIONS (1)
  - PALPITATIONS [None]
